FAERS Safety Report 11459337 (Version 1)
Quarter: 2015Q3

REPORT INFORMATION
  Report Type: Spontaneous
  Country: US (occurrence: US)
  Receive Date: 20150904
  Receipt Date: 20150904
  Transmission Date: 20151125
  Serious: No
  Sender: FDA-Public Use
  Company Number: US-JNJFOC-20150823898

PATIENT
  Age: 57 Year
  Sex: Female
  Weight: 74.84 kg

DRUGS (7)
  1. VITAMIN D3 [Suspect]
     Active Substance: CHOLECALCIFEROL
     Indication: BONE DISORDER
     Route: 065
     Dates: start: 20150826
  2. METFORMIN [Concomitant]
     Active Substance: METFORMIN HYDROCHLORIDE
     Indication: TYPE 2 DIABETES MELLITUS
     Route: 065
  3. INVOKANA [Suspect]
     Active Substance: CANAGLIFLOZIN
     Indication: PRODUCT USED FOR UNKNOWN INDICATION
     Route: 048
     Dates: start: 2015
  4. VITAMIN D3 [Suspect]
     Active Substance: CHOLECALCIFEROL
     Indication: FIBROSIS
     Route: 065
     Dates: start: 20150826
  5. LISINOPRIL. [Concomitant]
     Active Substance: LISINOPRIL
     Indication: BLOOD PRESSURE MEASUREMENT
     Route: 065
  6. VITAMIN D3 [Suspect]
     Active Substance: CHOLECALCIFEROL
     Indication: ARTHRITIS
     Route: 065
     Dates: start: 20150826
  7. GLIPIZIDE. [Concomitant]
     Active Substance: GLIPIZIDE
     Indication: TYPE 2 DIABETES MELLITUS
     Route: 065

REACTIONS (2)
  - Therapeutic response unexpected [Unknown]
  - Photopsia [Not Recovered/Not Resolved]

NARRATIVE: CASE EVENT DATE: 2015
